FAERS Safety Report 5990336-5 (Version None)
Quarter: 2008Q4

REPORT INFORMATION
  Report Type: 
  Country: None (occurrence: None)
  Receive Date: 20081211
  Receipt Date: 20081201
  Transmission Date: 20090506
  Serious: Yes (Hospitalization)
  Sender: FDA-Public Use
  Company Number: US-AMGEN-QUU321634

PATIENT
  Sex: Male

DRUGS (3)
  1. ENBREL [Suspect]
     Indication: PSORIATIC ARTHROPATHY
  2. METHOTREXATE [Concomitant]
     Route: 048
  3. HUMIRA [Concomitant]

REACTIONS (5)
  - CONVULSION [None]
  - DEHYDRATION [None]
  - DIARRHOEA [None]
  - OSTEOARTHRITIS [None]
  - PSORIATIC ARTHROPATHY [None]
